FAERS Safety Report 5750460-9 (Version None)
Quarter: 2008Q2

REPORT INFORMATION
  Report Type: 
  Country: None (occurrence: None)
  Receive Date: 20080528
  Receipt Date: 20071019
  Transmission Date: 20081010
  Serious: No
  Sender: FDA-Public Use
  Company Number: US-KINGPHARMUSA00001-K200701359

PATIENT

DRUGS (10)
  1. AVINZA [Suspect]
     Indication: PAIN
     Dosage: 60 MG, QD
     Route: 048
     Dates: start: 20070701
  2. AVINZA [Suspect]
     Dosage: 120 MG, QD
     Route: 048
     Dates: start: 20071001
  3. PERCOCET [Concomitant]
     Indication: PAIN
  4. LYRICA [Concomitant]
  5. LANTUS [Concomitant]
     Indication: DIABETES MELLITUS
  6. CYMBALTA [Concomitant]
  7. SKELAXIN [Concomitant]
  8. ELAVIL [Concomitant]
  9. LIPITOR [Concomitant]
  10. NEXIUM [Concomitant]

REACTIONS (3)
  - DRUG DIVERSION [None]
  - DRUG INEFFECTIVE [None]
  - INTENTIONAL DRUG MISUSE [None]
